FAERS Safety Report 7345643-0 (Version None)
Quarter: 2011Q1

REPORT INFORMATION
  Report Type: 
  Country: None (occurrence: None)
  Receive Date: 20110310
  Receipt Date: 20110304
  Transmission Date: 20110831
  Serious: Yes (Hospitalization)
  Sender: FDA-Public Use
  Company Number: A0917412A

PATIENT
  Age: 56 Year
  Sex: Male

DRUGS (1)
  1. VENTOLIN HFA [Suspect]
     Route: 055
     Dates: start: 20081211

REACTIONS (1)
  - ADVERSE EVENT [None]
